FAERS Safety Report 25163033 (Version 1)
Quarter: 2025Q2

REPORT INFORMATION
  Report Type: Spontaneous
  Country: CH (occurrence: CH)
  Receive Date: 20250404
  Receipt Date: 20250404
  Transmission Date: 20250716
  Serious: Yes (Other)
  Sender: MERCK SHARP AND DOHME
  Company Number: None

PATIENT
  Age: 66 Year
  Sex: Male
  Weight: 45 kg

DRUGS (11)
  1. PEMBROLIZUMAB [Suspect]
     Active Substance: PEMBROLIZUMAB
     Indication: Lung adenocarcinoma stage II
     Route: 040
     Dates: start: 20240808, end: 20240808
  2. PEMBROLIZUMAB [Suspect]
     Active Substance: PEMBROLIZUMAB
     Indication: Lung adenocarcinoma stage II
     Route: 040
     Dates: start: 20240826, end: 20240826
  3. PEMBROLIZUMAB [Suspect]
     Active Substance: PEMBROLIZUMAB
     Indication: Lung adenocarcinoma stage II
     Route: 040
     Dates: start: 20240917, end: 20240917
  4. CARBOPLATIN [Concomitant]
     Active Substance: CARBOPLATIN
     Indication: Lung adenocarcinoma stage II
     Route: 040
     Dates: start: 20240808, end: 20240808
  5. CARBOPLATIN [Concomitant]
     Active Substance: CARBOPLATIN
     Indication: Lung adenocarcinoma stage II
     Route: 040
     Dates: start: 20241029, end: 20241029
  6. CARBOPLATIN [Concomitant]
     Active Substance: CARBOPLATIN
     Indication: Lung adenocarcinoma stage II
     Route: 040
     Dates: start: 20240826, end: 20240826
  7. CARBOPLATIN [Concomitant]
     Active Substance: CARBOPLATIN
     Indication: Lung adenocarcinoma stage II
     Route: 040
     Dates: start: 20240917, end: 20240917
  8. ALIMTA [Concomitant]
     Active Substance: PEMETREXED DISODIUM
     Indication: Lung adenocarcinoma stage II
     Route: 040
     Dates: start: 20240808, end: 20240808
  9. ALIMTA [Concomitant]
     Active Substance: PEMETREXED DISODIUM
     Indication: Lung adenocarcinoma stage II
     Route: 040
     Dates: start: 20240826, end: 20240826
  10. ALIMTA [Concomitant]
     Active Substance: PEMETREXED DISODIUM
     Indication: Lung adenocarcinoma stage II
     Route: 040
     Dates: start: 20241029, end: 20241029
  11. ALIMTA [Concomitant]
     Active Substance: PEMETREXED DISODIUM
     Indication: Lung adenocarcinoma stage II
     Route: 040
     Dates: start: 20240917, end: 20240917

REACTIONS (2)
  - Eczema [Recovered/Resolved]
  - Eczema [Recovered/Resolved]

NARRATIVE: CASE EVENT DATE: 20241001
